FAERS Safety Report 7879542-2 (Version None)
Quarter: 2011Q4

REPORT INFORMATION
  Report Type: 
  Country: None (occurrence: None)
  Receive Date: 20111101
  Receipt Date: 20111019
  Transmission Date: 20120403
  Serious: Yes (Hospitalization)
  Sender: FDA-Public Use
  Company Number: US-GLAXOSMITHKLINE-A0884110A

PATIENT
  Age: 67 Year
  Sex: Male
  Weight: 82.7 kg

DRUGS (6)
  1. VERAPAMIL [Concomitant]
  2. LISINOPRIL [Concomitant]
  3. AVANDIA [Suspect]
     Indication: DIABETES MELLITUS
     Dosage: 4MG PER DAY
     Route: 048
     Dates: start: 20010608, end: 20070912
  4. VYTORIN [Concomitant]
  5. MINOXIDIL [Concomitant]
  6. INSULIN [Concomitant]

REACTIONS (7)
  - UPPER LIMB FRACTURE [None]
  - HIP FRACTURE [None]
  - CEREBROVASCULAR ACCIDENT [None]
  - DIZZINESS [None]
  - CARDIAC FAILURE [None]
  - LOWER LIMB FRACTURE [None]
  - CORONARY ARTERY DISEASE [None]
